FAERS Safety Report 17242866 (Version 1)
Quarter: 2020Q1

REPORT INFORMATION
  Report Type: Spontaneous
  Country: PL (occurrence: PL)
  Receive Date: 20200107
  Receipt Date: 20200107
  Transmission Date: 20200409
  Serious: Yes (Hospitalization, Other)
  Sender: FDA-Public Use
  Company Number: PL-MYLANLABS-2020M1001309

PATIENT
  Age: 53 Year
  Sex: Female

DRUGS (7)
  1. ROSUVASTATIN. [Suspect]
     Active Substance: ROSUVASTATIN
     Indication: PRODUCT USED FOR UNKNOWN INDICATION
     Dosage: UNK
  2. METOPROLOL. [Suspect]
     Active Substance: METOPROLOL
     Indication: PRODUCT USED FOR UNKNOWN INDICATION
     Dosage: UNK
  3. GLIMEPIRIDE. [Suspect]
     Active Substance: GLIMEPIRIDE
     Indication: PRODUCT USED FOR UNKNOWN INDICATION
     Dosage: UNK
  4. ALLOPURINOL. [Suspect]
     Active Substance: ALLOPURINOL
     Indication: PRODUCT USED FOR UNKNOWN INDICATION
     Dosage: UNK
  5. METFORMIN [Suspect]
     Active Substance: METFORMIN HYDROCHLORIDE
     Indication: PRODUCT USED FOR UNKNOWN INDICATION
     Dosage: UNK
  6. RAMIPRIL. [Suspect]
     Active Substance: RAMIPRIL
     Indication: PRODUCT USED FOR UNKNOWN INDICATION
     Dosage: UNK
  7. FENOTEROL [Suspect]
     Active Substance: FENOTEROL
     Indication: DYSPNOEA
     Dosage: UNK

REACTIONS (11)
  - Hepatic fibrosis [Unknown]
  - Anaemia macrocytic [Unknown]
  - Autoimmune hepatitis [Unknown]
  - Cholestasis [Unknown]
  - Non-alcoholic steatohepatitis [Unknown]
  - Erosive oesophagitis [Unknown]
  - Hepatomegaly [Unknown]
  - Haemochromatosis [Unknown]
  - Chronic gastritis [Unknown]
  - Gastrooesophageal sphincter insufficiency [Unknown]
  - Pylorus dilatation [Unknown]
